FAERS Safety Report 24895321 (Version 1)
Quarter: 2025Q1

REPORT INFORMATION
  Report Type: Spontaneous
  Country: US (occurrence: US)
  Receive Date: 20250128
  Receipt Date: 20250128
  Transmission Date: 20250409
  Serious: Yes (Other)
  Sender: NOVO NORDISK
  Company Number: US-NOVOPROD-1354219

PATIENT
  Age: 39 Year
  Sex: Female

DRUGS (1)
  1. WEGOVY [Suspect]
     Active Substance: SEMAGLUTIDE
     Indication: Weight control
     Route: 058
     Dates: start: 2024

REACTIONS (1)
  - In vitro fertilisation [Unknown]

NARRATIVE: CASE EVENT DATE: 20240101
